FAERS Safety Report 8179670-0 (Version None)
Quarter: 2012Q1

REPORT INFORMATION
  Report Type: 
  Country: None (occurrence: None)
  Receive Date: 20120129
  Receipt Date: 20120129
  Transmission Date: 20120608
  Serious: Yes (Other)
  Sender: FDA-Public Use
  Company Number: None

PATIENT
  Age: 12 Year
  Sex: Female

DRUGS (1)
  1. LISTERINE POCKETPAK (ORAL CARE PRODUCTS) FILMSTRIP [Suspect]
     Indication: PRODUCT USED FOR UNKNOWN INDICATION
     Dosage: THE WHOLE PACK ORAL
     Route: 048
     Dates: start: 20111214

REACTIONS (5)
  - EATING DISORDER [None]
  - FATIGUE [None]
  - PSYCHOMOTOR HYPERACTIVITY [None]
  - EUPHORIC MOOD [None]
  - ABNORMAL BEHAVIOUR [None]
